FAERS Safety Report 7959947-1 (Version None)
Quarter: 2011Q4

REPORT INFORMATION
  Report Type: 
  Country: None (occurrence: None)
  Receive Date: 20111206
  Receipt Date: 20111121
  Transmission Date: 20120403
  Serious: Yes (Other)
  Sender: FDA-Public Use
  Company Number: CN-WATSON-2011-20886

PATIENT
  Age: 47 Year
  Sex: Male

DRUGS (9)
  1. FILGRASTIM [Suspect]
  2. TENOFOVIR [Suspect]
  3. EFAVIRENZ [Suspect]
  4. PREDNISOLONE [Suspect]
     Indication: CHEMOTHERAPY
  5. CYCLOPHOSPHAMIDE [Suspect]
  6. DOXORUBICIN HCL [Suspect]
  7. VINCRISTINE [Suspect]
  8. RITUXIMAB [Suspect]
  9. LAMIVUDINE(PEPFAR) [Suspect]

REACTIONS (1)
  - NEUTROPHIL MORPHOLOGY ABNORMAL [None]
